FAERS Safety Report 4453638-X (Version None)
Quarter: 2004Q3

REPORT INFORMATION
  Report Type: 
  Country: None (occurrence: None)
  Receive Date: 20040920
  Receipt Date: 20040819
  Transmission Date: 20050211
  Serious: Yes (Hospitalization)
  Sender: FDA-Public Use
  Company Number: PHBS2004JP11035

PATIENT
  Age: 66 Year
  Sex: Male

DRUGS (14)
  1. LAMISIL [Suspect]
     Indication: BODY TINEA
     Dosage: 125 MG/DAY
     Route: 048
     Dates: start: 20040708, end: 20040812
  2. FLOMOX [Suspect]
     Indication: NASOPHARYNGITIS
     Dosage: 300 MG/DAY
     Route: 048
     Dates: start: 20040730, end: 20040803
  3. BRUFEN [Suspect]
     Indication: NASOPHARYNGITIS
     Dosage: 3 G/DAY
     Route: 048
     Dates: start: 20040730, end: 20040803
  4. MEDICON [Suspect]
     Indication: NASOPHARYNGITIS
     Dosage: 0.6 G/DAY
     Route: 048
     Dates: start: 20040730, end: 20040803
  5. BIOFERMIN R [Suspect]
     Indication: NASOPHARYNGITIS
     Dosage: 2 G/DAY
     Route: 048
     Dates: start: 20040730, end: 20040803
  6. BERIZYM [Suspect]
     Indication: NASOPHARYNGITIS
     Dosage: 1.5 G/DAY
     Route: 048
     Dates: start: 20040730, end: 20040803
  7. BUP-4 [Concomitant]
     Indication: PROSTATE CANCER
     Dosage: 20 MG/DAY
     Route: 048
     Dates: start: 20030226
  8. ZOLADEX [Concomitant]
     Indication: PROSTATE CANCER
     Dosage: 3.6 MG/DAY
     Route: 058
     Dates: start: 20020710
  9. DEPAS [Concomitant]
     Indication: INSOMNIA
     Dosage: 0.5 MG/DAY
     Route: 048
  10. MAGNESIUM OXIDE [Concomitant]
     Indication: CONSTIPATION
     Dosage: 1.5 G/DAY
     Route: 048
  11. AMLODIN [Concomitant]
     Indication: HYPERTENSION
     Dosage: 2.5 MG/DAY
     Route: 048
  12. BLOPRESS [Concomitant]
     Indication: HYPERTENSION
     Dosage: 2 MG/DAY
     Route: 048
  13. LAC B [Concomitant]
     Indication: CONSTIPATION
     Dosage: 3 G/DAY
     Route: 048
  14. EXCELASE [Concomitant]
     Dosage: 1.2 G/DAY
     Route: 048

REACTIONS (6)
  - DRUG ERUPTION [None]
  - ERYTHEMA [None]
  - ERYTHEMA OF EYELID [None]
  - EXANTHEM [None]
  - EYELID OEDEMA [None]
  - SWELLING [None]
